FAERS Safety Report 7097374-2 (Version None)
Quarter: 2010Q4

REPORT INFORMATION
  Report Type: 
  Country: None (occurrence: None)
  Receive Date: 20101111
  Receipt Date: 20101108
  Transmission Date: 20110411
  Serious: Yes (Death, Hospitalization, Other)
  Sender: FDA-Public Use
  Company Number: TW-ROXANE LABORATORIES, INC.-2010-RO-01471RO

PATIENT
  Age: 56 Year
  Sex: Male

DRUGS (12)
  1. CYCLOPHOSPHAMIDE [Suspect]
     Indication: URETERIC CANCER
  2. CYCLOPHOSPHAMIDE [Suspect]
     Indication: METASTASES TO LIVER
  3. CYCLOPHOSPHAMIDE [Suspect]
     Indication: METASTASES TO LUNG
  4. CYCLOPHOSPHAMIDE [Suspect]
     Indication: PALLIATIVE CARE
  5. METHOTREXATE [Suspect]
     Indication: URETERIC CANCER
  6. METHOTREXATE [Suspect]
     Indication: METASTASES TO LIVER
  7. METHOTREXATE [Suspect]
     Indication: METASTASES TO LUNG
  8. METHOTREXATE [Suspect]
     Indication: PALLIATIVE CARE
  9. DOXORUBICIN HCL [Suspect]
     Indication: URETERIC CANCER
  10. DOXORUBICIN HCL [Suspect]
     Indication: METASTASES TO LIVER
  11. DOXORUBICIN HCL [Suspect]
     Indication: METASTASES TO LUNG
  12. DOXORUBICIN HCL [Suspect]
     Indication: PALLIATIVE CARE

REACTIONS (4)
  - MALIGNANT NEOPLASM PROGRESSION [None]
  - NAUSEA [None]
  - PNEUMATOSIS [None]
  - VOMITING [None]
